FAERS Safety Report 10038627 (Version 1)
Quarter: 2014Q1

REPORT INFORMATION
  Report Type: Spontaneous
  Country: US (occurrence: None)
  Receive Date: 20140306
  Receipt Date: 20140306
  Transmission Date: 20141002
  Serious: Yes (Other)
  Sender: FDA-Public Use
  Company Number: 163-21880-13070135

PATIENT
  Age: 84 Year
  Sex: Male
  Weight: 77.11 kg

DRUGS (9)
  1. REVLIMID (LENALIDOMIDE) (25 MILLIGRAM, CAPSULES) [Suspect]
     Indication: PLASMA CELL MYELOMA
     Dosage: 21 IN 42 D
     Route: 048
     Dates: start: 20130606
  2. LIPITOR(ATORVASTATIN) [Concomitant]
  3. HYDROCORTISONE(HYDROCORTISONE) [Concomitant]
  4. PANTOPRAZOLE(PANTOPRAZOLE) [Concomitant]
  5. METOPROLOL(METOPROLOL) [Concomitant]
  6. BUDESONIDE(BUDESONIDE) [Concomitant]
  7. FERROUS SULFATE(FERROUS SULFATE) [Concomitant]
  8. DEXAMETHASONE(DEXAMETHASONE) [Concomitant]
  9. FLUOCINONIDE(FLUOCINONIDE) [Concomitant]

REACTIONS (2)
  - Anaemia [None]
  - Dyspnoea [None]
